FAERS Safety Report 25464202 (Version 6)
Quarter: 2025Q4

REPORT INFORMATION
  Report Type: Spontaneous
  Country: US (occurrence: US)
  Receive Date: 20250621
  Receipt Date: 20251004
  Transmission Date: 20260117
  Serious: Yes (Hospitalization, Other)
  Sender: ACCORD
  Company Number: US-Accord-491239

PATIENT
  Age: 27 Year
  Sex: Male
  Weight: 61.0 kg

DRUGS (10)
  1. IRINOTECAN [Suspect]
     Active Substance: IRINOTECAN
     Indication: Ewing^s sarcoma
     Dosage: Q3WEEKS (50 MG/M2 DAILY FOR 5 DAYS), INTRAVENOUS
     Route: 042
     Dates: start: 20250512, end: 20250516
  2. TEMOZOLOMIDE [Suspect]
     Active Substance: TEMOZOLOMIDE
     Indication: Ewing^s sarcoma
     Dosage: Q3WEEKS (100MG/M2 DAILY FOR 5 DAYS),
     Route: 048
     Dates: start: 20250512, end: 20250516
  3. ATROPINE\DIPHENOXYLATE [Concomitant]
     Active Substance: ATROPINE\DIPHENOXYLATE
     Dates: start: 20250516
  4. LOPERAMIDE [Concomitant]
     Active Substance: LOPERAMIDE
     Dates: start: 20250516
  5. CALCIUM CARBONATE [Concomitant]
     Active Substance: CALCIUM CARBONATE
     Dates: start: 20250519
  6. ACETYLCYSTEINE [Concomitant]
     Active Substance: ACETYLCYSTEINE
     Dates: start: 20250512
  7. DEXAMETHASONE [Concomitant]
     Active Substance: DEXAMETHASONE
     Dates: start: 20250512
  8. ONDANSETRON HYDROCHLORIDE [Concomitant]
     Active Substance: ONDANSETRON HYDROCHLORIDE
     Dates: start: 20250512
  9. PROCHLORPERAZINE MALEATE [Concomitant]
     Active Substance: PROCHLORPERAZINE MALEATE
     Dates: start: 20250512
  10. DICYCLOMINE HYDROCHLORIDE [Concomitant]
     Active Substance: DICYCLOMINE HYDROCHLORIDE
     Dates: start: 20250521

REACTIONS (1)
  - Colitis [Recovered/Resolved]

NARRATIVE: CASE EVENT DATE: 20250523
